FAERS Safety Report 15543189 (Version 1)
Quarter: 2018Q4

REPORT INFORMATION
  Report Type: Spontaneous
  Country: SI (occurrence: SI)
  Receive Date: 20181023
  Receipt Date: 20181023
  Transmission Date: 20190205
  Serious: Yes (Other)
  Sender: FDA-Public Use
  Company Number: SI-PFIZER INC-2018428184

PATIENT
  Age: 56 Year
  Sex: Male

DRUGS (6)
  1. TENZOPRIL [Suspect]
     Active Substance: ZOFENOPRIL
     Dosage: 7.5 MG, 1X/DAY (QD IN THE MORNING)
  2. FOLASIC [Suspect]
     Active Substance: FOLIC ACID
     Dosage: 5 MG, 1X/DAY (QD IN THE MORNING)
  3. ALDACTONE [Suspect]
     Active Substance: SPIRONOLACTONE
     Dosage: 25 MG, 1X/DAY (QD IN THE MORNING)
  4. EDEMID [Suspect]
     Active Substance: FUROSEMIDE
     Dosage: 40 MG, 1X/DAY (QD IN MORNING AND AT 16.00)
     Route: 065
  5. EPLERENONE. [Suspect]
     Active Substance: EPLERENONE
     Dosage: UNK
  6. BYOL [Suspect]
     Active Substance: BISOPROLOL
     Dosage: 2.5 MG, 1X/DAY (QD IN MORNING)

REACTIONS (9)
  - Gynaecomastia [Unknown]
  - Respiratory rate increased [Unknown]
  - Hypovolaemia [Unknown]
  - Dyspnoea exertional [Unknown]
  - Cardiomyopathy alcoholic [Unknown]
  - Blood pressure increased [Unknown]
  - Oedema [Unknown]
  - Cardiac failure chronic [Unknown]
  - Weight decreased [Unknown]
